FAERS Safety Report 4458261-9 (Version None)
Quarter: 2004Q3

REPORT INFORMATION
  Report Type: 
  Country: None (occurrence: None)
  Receive Date: 20040817
  Receipt Date: 20040310
  Transmission Date: 20050211
  Serious: Yes (Other)
  Sender: FDA-Public Use
  Company Number: US-JNJFOC-20040205246

PATIENT
  Age: 66 Year
  Sex: Female
  Weight: 77.1115 kg

DRUGS (10)
  1. TOPAMAX [Suspect]
     Indication: FIBROMYALGIA
     Dosage: 75 MG, IN 1 DAY, ORAL
     Route: 048
  2. LODINE [Concomitant]
  3. VASOTEC [Concomitant]
  4. SYNTHROID [Concomitant]
  5. THEO-DUR [Concomitant]
  6. DETROL LA (TOLTERIDONE L-TARTRATE) [Concomitant]
  7. PROZAC [Concomitant]
  8. DARVOCET [Concomitant]
  9. ZOCOR [Concomitant]
  10. SINGULAIR [Concomitant]

REACTIONS (3)
  - FALL [None]
  - HUMERUS FRACTURE [None]
  - UNEXPECTED THERAPEUTIC DRUG EFFECT [None]
